FAERS Safety Report 5852986-6 (Version None)
Quarter: 2008Q3

REPORT INFORMATION
  Report Type: 
  Country: None (occurrence: None)
  Receive Date: 20080821
  Receipt Date: 20080819
  Transmission Date: 20090109
  Serious: Yes (Hospitalization)
  Sender: FDA-Public Use
  Company Number: SE-SANOFI-SYNTHELABO-F01200701597

PATIENT
  Sex: Male
  Weight: 90 kg

DRUGS (6)
  1. BEVACIZUMAB [Suspect]
     Route: 042
     Dates: start: 20071128, end: 20071128
  2. CETUXIMAB [Suspect]
     Route: 042
     Dates: start: 20071128, end: 20071128
  3. FOLINIC ACID [Suspect]
     Route: 042
     Dates: start: 20071128, end: 20071128
  4. FLUOROURACIL [Suspect]
     Route: 040
     Dates: start: 20071128, end: 20071128
  5. FLUOROURACIL [Suspect]
     Route: 042
     Dates: start: 20071128, end: 20071128
  6. OXALIPLATIN [Suspect]
     Indication: COLORECTAL CANCER METASTATIC
     Route: 042
     Dates: start: 20071128, end: 20071128

REACTIONS (1)
  - MYOCARDIAL INFARCTION [None]
